FAERS Safety Report 7026447-5 (Version None)
Quarter: 2010Q4

REPORT INFORMATION
  Report Type: 
  Country: None (occurrence: None)
  Receive Date: 20101004
  Receipt Date: 20100927
  Transmission Date: 20110411
  Serious: Yes (Other)
  Sender: FDA-Public Use
  Company Number: US-B.I. PHARMACEUTICALS,INC./RIDGEFIELD-2010-BP-10923BP

PATIENT
  Age: 79 Year
  Sex: Female

DRUGS (15)
  1. SPIRIVA [Suspect]
     Indication: CHRONIC OBSTRUCTIVE PULMONARY DISEASE
     Dosage: 18 MCG
     Route: 055
     Dates: start: 20040101
  2. ALBUTEROL [Concomitant]
     Indication: CHRONIC OBSTRUCTIVE PULMONARY DISEASE
  3. ASTHAMANEX [Concomitant]
     Indication: CHRONIC OBSTRUCTIVE PULMONARY DISEASE
  4. PREDNISONE [Concomitant]
     Indication: CHRONIC OBSTRUCTIVE PULMONARY DISEASE
     Dosage: 5 MG
     Route: 048
  5. SINGULAIR [Concomitant]
     Indication: CHRONIC OBSTRUCTIVE PULMONARY DISEASE
     Dosage: 10 MG
     Route: 048
  6. ZANTAC [Concomitant]
     Indication: ABDOMINAL DISCOMFORT
     Dosage: 300 MG
     Route: 048
  7. PHENERGAN [Concomitant]
     Indication: ABDOMINAL DISCOMFORT
     Dosage: 12.5 MG
     Route: 048
  8. XANAX [Concomitant]
     Indication: INSOMNIA
     Route: 048
  9. FENTANYL [Concomitant]
     Indication: BACK PAIN
     Dosage: 25 MG
  10. HYDROCODONE [Concomitant]
     Indication: BACK PAIN
     Route: 048
  11. CARDIA [Concomitant]
     Indication: ATRIAL FIBRILLATION
     Dosage: 180 MG
     Route: 048
  12. POTASSIUM CHLORIDE [Concomitant]
     Indication: PROPHYLAXIS
     Route: 048
  13. FUROSEMIDE [Concomitant]
     Indication: FLUID RETENTION
     Route: 048
  14. ASPIRIN [Concomitant]
     Indication: PROPHYLAXIS
     Dosage: 81 MG
     Route: 048
  15. COUMADIN [Concomitant]
     Indication: ATRIAL FIBRILLATION
     Dosage: 5 MG
     Route: 048

REACTIONS (3)
  - MUSCULAR WEAKNESS [None]
  - RESTLESS LEGS SYNDROME [None]
  - TRANSIENT ISCHAEMIC ATTACK [None]
